FAERS Safety Report 8828558 (Version 3)
Quarter: 2019Q1

REPORT INFORMATION
  Report Type: Spontaneous
  Country: NL (occurrence: NL)
  Receive Date: 20121005
  Receipt Date: 20190219
  Transmission Date: 20190418
  Serious: Yes (Other)
  Sender: FDA-Public Use
  Company Number: NL-AMGEN-NLDSP2012062841

PATIENT
  Age: 28 Year
  Sex: Female
  Weight: 99 kg

DRUGS (4)
  1. ENBREL [Suspect]
     Active Substance: ETANERCEPT
     Indication: PRODUCT USED FOR UNKNOWN INDICATION
     Dosage: 50 MG, 2X/WEEK
     Route: 065
     Dates: start: 200906
  2. ENBREL [Suspect]
     Active Substance: ETANERCEPT
     Indication: SKIN DISORDER
  3. SEROQUEL [Concomitant]
     Active Substance: QUETIAPINE FUMARATE
     Dosage: 25 MG, 4X TO 6X/DAY
     Dates: start: 20120701
  4. VENLAFAXINE [Concomitant]
     Active Substance: VENLAFAXINE HYDROCHLORIDE
     Dosage: 150 MG, 1X/DAY
     Dates: start: 20120701

REACTIONS (1)
  - Adjustment disorder with depressed mood [Not Recovered/Not Resolved]

NARRATIVE: CASE EVENT DATE: 20120701
